FAERS Safety Report 23283478 (Version 4)
Quarter: 2024Q4

REPORT INFORMATION
  Report Type: Spontaneous
  Country: BR (occurrence: BR)
  Receive Date: 20231211
  Receipt Date: 20241028
  Transmission Date: 20250114
  Serious: Yes (Hospitalization, Other)
  Sender: BAYER HEALTHCARE LLC
  Company Number: BR-BAYER-2023A173770

PATIENT
  Age: 41 Year
  Sex: Female

DRUGS (4)
  1. NAPROXEN SODIUM [Suspect]
     Active Substance: NAPROXEN SODIUM
     Indication: Migraine
     Dosage: 1 DF
     Dates: start: 20230913, end: 20230913
  2. DESVENLAFAXINE [Concomitant]
     Active Substance: DESVENLAFAXINE
     Indication: Anxiety
     Dosage: UNK
     Dates: start: 20230310
  3. DESVENLAFAXINE [Concomitant]
     Active Substance: DESVENLAFAXINE
     Indication: Anxiety
     Dosage: UNK
     Dates: start: 202211
  4. TAPAZOL [THIAMAZOLE] [Concomitant]
     Indication: Graves^ disease
     Dates: start: 20190117

REACTIONS (5)
  - Stevens-Johnson syndrome [Recovered/Resolved]
  - Blister [None]
  - Skin burning sensation [None]
  - Pruritus [None]
  - Product use in unapproved indication [None]

NARRATIVE: CASE EVENT DATE: 20230913
